FAERS Safety Report 4300192-9 (Version None)
Quarter: 2004Q1

REPORT INFORMATION
  Report Type: 
  Country: None (occurrence: None)
  Receive Date: 20040218
  Receipt Date: 20040205
  Transmission Date: 20041129
  Serious: Yes (Other)
  Sender: FDA-Public Use
  Company Number: 2004008053

PATIENT
  Age: 80 Year
  Sex: Female
  Weight: 58 kg

DRUGS (7)
  1. SORTIS (ATORVASTATIN) [Suspect]
     Indication: ILL-DEFINED DISORDER
     Dosage: 40 MG (DAILY), ORAL
     Route: 048
  2. THEOPHYLLINE [Concomitant]
  3. PANTOPRAZOLE SODIUM (PANTOPRAZOLE SODIUM) [Concomitant]
  4. NICERGOLINE (NICERGOLINE) [Concomitant]
  5. CITALOPRAM HYDRBROMIDE (CITALOPRAM HYDROBROMIDE) [Concomitant]
  6. ALL OTHER THERAPEUTIC PRODUCTS [Concomitant]
  7. NEUROBION FOR INJECTION (PYRIDOXINE HYDROCHLORIDE, THIAMINE HYDROCHLOR [Concomitant]

REACTIONS (6)
  - ACCIDENT [None]
  - ARTHRALGIA [None]
  - CONCUSSION [None]
  - HAEMATOMA [None]
  - MYALGIA [None]
  - WHIPLASH INJURY [None]
